FAERS Safety Report 25162667 (Version 2)
Quarter: 2025Q2

REPORT INFORMATION
  Report Type: Report from Study
  Country: US (occurrence: US)
  Receive Date: 20250404
  Receipt Date: 20250426
  Transmission Date: 20250717
  Serious: Yes (Other)
  Sender: ABBVIE
  Company Number: US-ABBVIE-6208075

PATIENT
  Age: 61 Year
  Sex: Male
  Weight: 70.306 kg

DRUGS (1)
  1. SKYRIZI [Suspect]
     Active Substance: RISANKIZUMAB-RZAA
     Indication: Psoriatic arthropathy
     Dosage: STRENGTH 150 MG
     Route: 058

REACTIONS (4)
  - Intervertebral disc protrusion [Recovering/Resolving]
  - Spinal stenosis [Recovering/Resolving]
  - Nephropathy [Recovering/Resolving]
  - Inflammation [Recovering/Resolving]

NARRATIVE: CASE EVENT DATE: 20241201
